FAERS Safety Report 6540586-4 (Version None)
Quarter: 2010Q1

REPORT INFORMATION
  Report Type: 
  Country: None (occurrence: None)
  Receive Date: 20100112
  Receipt Date: 20091014
  Transmission Date: 20100710
  Serious: No
  Sender: FDA-Public Use
  Company Number: 2009-00661

PATIENT
  Sex: Female

DRUGS (1)
  1. ZICAM ORAL PRODUCTS [Suspect]
     Indication: NASOPHARYNGITIS
     Dosage: ONCE OR TWICE DAILY

REACTIONS (1)
  - AGEUSIA [None]
